FAERS Safety Report 18780138 (Version 1)
Quarter: 2021Q1

REPORT INFORMATION
  Report Type: Spontaneous
  Country: US (occurrence: US)
  Receive Date: 20210122
  Receipt Date: 20210122
  Transmission Date: 20210419
  Serious: Yes (Other)
  Sender: FDA-Public Use
  Company Number: None

PATIENT
  Age: 35 Year
  Sex: Female
  Weight: 95.3 kg

DRUGS (6)
  1. IBUPROFEN 600 MG [Concomitant]
     Active Substance: IBUPROFEN
  2. BAMLANIVIMAB. [Suspect]
     Active Substance: BAMLANIVIMAB
     Indication: COVID-19
     Dates: start: 20210112, end: 20210112
  3. ACETAMINOPHEN 500 MG [Concomitant]
     Active Substance: ACETAMINOPHEN
  4. TESSALON PEARLES [Concomitant]
  5. ALBUTEROL INHALER [Concomitant]
     Active Substance: ALBUTEROL
  6. DULERA 100?5 MCG/PUFF [Concomitant]

REACTIONS (4)
  - Pain [None]
  - Chills [None]
  - Headache [None]
  - Infusion related reaction [None]

NARRATIVE: CASE EVENT DATE: 20210112
